FAERS Safety Report 17313017 (Version 1)
Quarter: 2020Q1

REPORT INFORMATION
  Report Type: Spontaneous
  Country: US (occurrence: US)
  Receive Date: 20200124
  Receipt Date: 20200124
  Transmission Date: 20200409
  Serious: No
  Sender: FDA-Public Use
  Company Number: US-AUROBINDO-AUR-APL-2019-074533

PATIENT
  Age: 55 Year
  Sex: Female

DRUGS (1)
  1. MOXIFLOXACIN OPHTHALMIC SOLUTION USP 0.5 % W/V [Suspect]
     Active Substance: MOXIFLOXACIN
     Indication: PRODUCT USED FOR UNKNOWN INDICATION
     Dosage: 1 GTT DROPS, TWO TIMES A DAY, ONE IN THE EVENING AND ONE IN THE MORNING
     Route: 065
     Dates: start: 20191101

REACTIONS (2)
  - Laboratory test abnormal [Recovering/Resolving]
  - Eye irritation [Recovering/Resolving]

NARRATIVE: CASE EVENT DATE: 20191101
